FAERS Safety Report 11652817 (Version 3)
Quarter: 2015Q4

REPORT INFORMATION
  Report Type: Spontaneous
  Country: BR (occurrence: BR)
  Receive Date: 20151022
  Receipt Date: 20151130
  Transmission Date: 20160304
  Serious: Yes (Other)
  Sender: FDA-Public Use
  Company Number: BR-PFIZER INC-2015335614

PATIENT
  Age: 64 Year
  Sex: Female

DRUGS (15)
  1. ESCITALOPRAM [Concomitant]
     Active Substance: ESCITALOPRAM OXALATE
  2. GLIMEPIRIDE. [Concomitant]
     Active Substance: GLIMEPIRIDE
     Indication: DIABETES MELLITUS
     Dosage: 2 MG, 1X/DAY (IN THE MORNING)
  3. ATENOLOL. [Concomitant]
     Active Substance: ATENOLOL
     Dosage: 25 MG, 2X/DAY
  4. PREMARIN [Suspect]
     Active Substance: ESTROGENS, CONJUGATED
     Indication: VULVOVAGINAL DRYNESS
     Dosage: UNK
     Route: 067
     Dates: start: 1990
  5. FUROSEMIDE. [Concomitant]
     Active Substance: FUROSEMIDE
     Dosage: 40 MG, 1X/DAY
  6. DIPYRONE [Concomitant]
     Active Substance: DIPYRONE
     Indication: JOINT SWELLING
  7. PREMARIN [Suspect]
     Active Substance: ESTROGENS, CONJUGATED
     Indication: VAGINAL DISORDER
  8. SIMVASTATIN. [Concomitant]
     Active Substance: SIMVASTATIN
     Dosage: 20 MG, 1X/DAY (AT NIGHT)
  9. SPIRONOLACTONE. [Concomitant]
     Active Substance: SPIRONOLACTONE
     Dosage: 25 MG, 1X/DAY
  10. OMEPRAZOLE. [Concomitant]
     Active Substance: OMEPRAZOLE
     Dosage: 20 MG, 2X/DAY
  11. METFORMINE [Concomitant]
     Active Substance: METFORMIN HYDROCHLORIDE
     Dosage: 85 MG, 2X/DAY
  12. CATAFLAM /00372302/ [Concomitant]
     Active Substance: DICLOFENAC POTASSIUM
     Indication: JOINT SWELLING
  13. DORFLEX [Concomitant]
     Active Substance: CAFFEINE\DIPYRONE\ORPHENADRINE
     Indication: JOINT SWELLING
  14. DIAZEPAM. [Concomitant]
     Active Substance: DIAZEPAM
  15. RANITIDINE [Concomitant]
     Active Substance: RANITIDINE\RANITIDINE HYDROCHLORIDE
     Dosage: 150 MG, 2X/DAY

REACTIONS (10)
  - Varicose vein [Unknown]
  - Emotional distress [Not Recovered/Not Resolved]
  - Rectal haemorrhage [Recovered/Resolved]
  - Vulvovaginal pain [Unknown]
  - Intestinal haemorrhage [Recovered/Resolved]
  - Nodule [Unknown]
  - Hepatic cyst [Not Recovered/Not Resolved]
  - Osteoporosis [Unknown]
  - Lipoma [Unknown]
  - Osteopenia [Unknown]

NARRATIVE: CASE EVENT DATE: 2015
